FAERS Safety Report 24125527 (Version 1)
Quarter: 2024Q3

REPORT INFORMATION
  Report Type: Spontaneous
  Country: US (occurrence: None)
  Receive Date: 20240722
  Receipt Date: 20240722
  Transmission Date: 20241017
  Serious: Yes (Hospitalization)
  Sender: Public
  Company Number: None

PATIENT
  Age: 29 Year
  Sex: Female
  Weight: 77.5 kg

DRUGS (1)
  1. FERUMOXYTOL [Suspect]
     Active Substance: FERUMOXYTOL
     Indication: Anaemia of pregnancy
     Dosage: FREQUENCY : ONCE;?
     Route: 041
     Dates: start: 20240722, end: 20240722

REACTIONS (4)
  - Exposure during pregnancy [None]
  - Maternal drugs affecting foetus [None]
  - Seizure [None]
  - Infusion related reaction [None]

NARRATIVE: CASE EVENT DATE: 20240722
